FAERS Safety Report 9701436 (Version 2)
Quarter: 2013Q4

REPORT INFORMATION
  Report Type: Spontaneous
  Country: US (occurrence: US)
  Receive Date: 20131121
  Receipt Date: 20131121
  Transmission Date: 20140711
  Serious: Yes (Hospitalization)
  Sender: FDA-Public Use
  Company Number: US-GILEAD-2008-0016599

PATIENT
  Age: 59 Year
  Sex: Male
  Weight: 69.4 kg

DRUGS (9)
  1. LETAIRIS [Suspect]
     Indication: PULMONARY ARTERIAL HYPERTENSION
     Route: 048
     Dates: start: 20080307, end: 20080430
  2. FUROSEMIDE [Concomitant]
  3. METOPROLOL [Concomitant]
  4. ALLOPURINOL [Concomitant]
  5. OMEPRAZOLE [Concomitant]
  6. LOVASTATIN [Concomitant]
  7. ASA [Concomitant]
  8. SPIRIVA [Concomitant]
     Route: 055
  9. B-COMPLEX [Concomitant]

REACTIONS (2)
  - Local swelling [Not Recovered/Not Resolved]
  - Red blood cell count decreased [Not Recovered/Not Resolved]
